FAERS Safety Report 18348672 (Version 1)
Quarter: 2020Q4

REPORT INFORMATION
  Report Type: Spontaneous
  Country: US (occurrence: US)
  Receive Date: 20201006
  Receipt Date: 20201006
  Transmission Date: 20210114
  Serious: No
  Sender: FDA-Public Use
  Company Number: US-ELI_LILLY_AND_COMPANY-US202001005772

PATIENT

DRUGS (1)
  1. TRULICITY [Suspect]
     Active Substance: DULAGLUTIDE
     Indication: PRODUCT USED FOR UNKNOWN INDICATION
     Dosage: UNK UNK, UNKNOWN
     Route: 065

REACTIONS (7)
  - Flatulence [Unknown]
  - Eructation [Unknown]
  - Glycosylated haemoglobin decreased [Unknown]
  - Weight decreased [Unknown]
  - Abdominal distension [Unknown]
  - Asthenia [Unknown]
  - Insomnia [Unknown]
